FAERS Safety Report 24936546 (Version 4)
Quarter: 2025Q4

REPORT INFORMATION
  Report Type: Report from Study
  Country: US (occurrence: US)
  Receive Date: 20250206
  Receipt Date: 20251124
  Transmission Date: 20260119
  Serious: No
  Sender: TRAVERE THERAPEUTICS
  Company Number: US-TRAVERE-2025TVT00134

PATIENT
  Age: 71 Year
  Sex: Male
  Weight: 107 kg

DRUGS (17)
  1. FILSPARI [Suspect]
     Active Substance: SPARSENTAN
     Indication: IgA nephropathy
     Route: 048
     Dates: start: 20241218
  2. FILSPARI [Suspect]
     Active Substance: SPARSENTAN
     Route: 048
     Dates: start: 20250102, end: 20250127
  3. FILSPARI [Suspect]
     Active Substance: SPARSENTAN
     Route: 048
     Dates: start: 20250211
  4. LANTUS [Concomitant]
     Active Substance: INSULIN GLARGINE
  5. HUMALOG [Concomitant]
     Active Substance: INSULIN LISPRO
  6. CHOLECALCIFEROL [Concomitant]
     Active Substance: CHOLECALCIFEROL
  7. DAPAGLIFLOZIN PROPANEDIOL [Concomitant]
     Active Substance: DAPAGLIFLOZIN PROPANEDIOL
  8. VYTORIN [Concomitant]
     Active Substance: EZETIMIBE\SIMVASTATIN
  9. FINERENONE [Concomitant]
     Active Substance: FINERENONE
  10. FLUOROURACIL [Concomitant]
     Active Substance: FLUOROURACIL
  11. GABAPENTIN [Concomitant]
     Active Substance: GABAPENTIN
  12. KERENDIA [Concomitant]
     Active Substance: FINERENONE
  13. LISINOPRIL [Concomitant]
     Active Substance: LISINOPRIL
  14. METOPROLOL [Concomitant]
     Active Substance: METOPROLOL
  15. OMEGA 3 [Concomitant]
     Active Substance: CAPSAICIN
  16. FLOMAX [Concomitant]
     Active Substance: TAMSULOSIN HYDROCHLORIDE
  17. TRAMADOL [Concomitant]
     Active Substance: TRAMADOL

REACTIONS (8)
  - Hepatic enzyme increased [Unknown]
  - Blood potassium increased [Unknown]
  - Blood urea increased [Unknown]
  - Blood creatinine increased [Unknown]
  - Blood glucose increased [Unknown]
  - Urine albumin/creatinine ratio increased [Unknown]
  - Vitamin D decreased [Unknown]
  - Blood glucose decreased [Unknown]

NARRATIVE: CASE EVENT DATE: 20250117
